FAERS Safety Report 23827500 (Version 2)
Quarter: 2024Q2

REPORT INFORMATION
  Report Type: Spontaneous
  Country: US (occurrence: None)
  Receive Date: 20240507
  Receipt Date: 20240603
  Transmission Date: 20240716
  Serious: No
  Sender: FDA-Public Use
  Company Number: 2024A089475

PATIENT
  Sex: Female

DRUGS (1)
  1. SAPHNELO [Suspect]
     Active Substance: ANIFROLUMAB\ANIFROLUMAB-FNIA
     Dates: start: 202310

REACTIONS (8)
  - Sinusitis [Unknown]
  - Respiratory tract infection [Unknown]
  - Sinus disorder [Unknown]
  - Aphonia [Unknown]
  - Confusional state [Unknown]
  - Headache [Unknown]
  - Pharyngitis [Unknown]
  - Pain [Unknown]
